FAERS Safety Report 13162118 (Version 2)
Quarter: 2017Q1

REPORT INFORMATION
  Report Type: Spontaneous
  Country: US (occurrence: US)
  Receive Date: 20170130
  Receipt Date: 20170306
  Transmission Date: 20170428
  Serious: No
  Sender: FDA-Public Use
  Company Number: US-PFIZER INC-2017036885

PATIENT
  Age: 58 Year
  Sex: Female

DRUGS (2)
  1. LETROZOLE. [Suspect]
     Active Substance: LETROZOLE
     Dosage: UNK
  2. IBRANCE [Suspect]
     Active Substance: PALBOCICLIB
     Dosage: 125 MG, CYCLIC (DAILY FOR  21 DAYS AND OFF FOR 7 DAYS)
     Route: 048
     Dates: start: 20170120

REACTIONS (4)
  - Decreased appetite [Unknown]
  - Hunger [Unknown]
  - Dysgeusia [Unknown]
  - Full blood count decreased [Unknown]
